FAERS Safety Report 24958812 (Version 1)
Quarter: 2025Q1

REPORT INFORMATION
  Report Type: Spontaneous
  Country: US (occurrence: US)
  Receive Date: 20250212
  Receipt Date: 20250212
  Transmission Date: 20250409
  Serious: No
  Sender: ALCON
  Company Number: US-ALCON LABORATORIES-ALC2024US003225

PATIENT
  Age: 89 Year
  Sex: Female

DRUGS (10)
  1. PILOCARPINE [Suspect]
     Active Substance: PILOCARPINE
     Indication: Glaucoma
     Route: 047
  2. RHOPRESSA [Suspect]
     Active Substance: NETARSUDIL MESYLATE
     Indication: Intraocular pressure increased
     Route: 047
     Dates: start: 20240614
  3. ASPIRIN [Concomitant]
     Active Substance: ASPIRIN
     Indication: Hypertension
     Route: 065
  4. ASPIRIN [Concomitant]
     Active Substance: ASPIRIN
     Indication: Cardiovascular symptom
  5. ATORVASTATIN [Concomitant]
     Active Substance: ATORVASTATIN
     Indication: Hypertension
     Route: 065
  6. ATORVASTATIN [Concomitant]
     Active Substance: ATORVASTATIN
     Indication: Cardiovascular symptom
  7. LISINOPRIL [Concomitant]
     Active Substance: LISINOPRIL
     Indication: Hypertension
     Route: 065
  8. LISINOPRIL [Concomitant]
     Active Substance: LISINOPRIL
     Indication: Cardiovascular symptom
  9. LORAZEPAM [Concomitant]
     Active Substance: LORAZEPAM
     Indication: Hypertension
     Route: 065
  10. LORAZEPAM [Concomitant]
     Active Substance: LORAZEPAM
     Indication: Cardiovascular symptom

REACTIONS (2)
  - Eyelid rash [Not Recovered/Not Resolved]
  - Eye pruritus [Not Recovered/Not Resolved]
